FAERS Safety Report 5147917-0 (Version None)
Quarter: 2006Q4

REPORT INFORMATION
  Report Type: 
  Country: None (occurrence: None)
  Receive Date: 20061110
  Receipt Date: 20061107
  Transmission Date: 20070319
  Serious: Yes (Death)
  Sender: FDA-Public Use
  Company Number: PHFR2006GB03301

PATIENT
  Age: 13 Month
  Sex: Male

DRUGS (4)
  1. DERMOL [Concomitant]
     Route: 065
  2. HYDROCORTISONE [Concomitant]
     Dosage: 1 %, UNK
  3. VALLERGAN [Concomitant]
     Indication: ECZEMA
     Dosage: 7.5 MG, QD
     Route: 065
     Dates: start: 20060301
  4. PIMECROLIMUS [Suspect]
     Indication: ECZEMA
     Dosage: UNK, BID
     Route: 061
     Dates: start: 20060501

REACTIONS (1)
  - PNEUMOCOCCAL SEPSIS [None]
